FAERS Safety Report 4638313-0 (Version None)
Quarter: 2005Q2

REPORT INFORMATION
  Report Type: 
  Country: None (occurrence: None)
  Receive Date: 20050415
  Receipt Date: 20050401
  Transmission Date: 20051028
  Serious: Yes (Hospitalization)
  Sender: FDA-Public Use
  Company Number: 310006M05FRA

PATIENT
  Sex: Female

DRUGS (1)
  1. GONAL-F [Suspect]
     Dosage: 600 IU, 1 IN 1 DAYS, SUBCUTANEOUS
     Route: 058

REACTIONS (2)
  - GENERALISED OEDEMA [None]
  - OVARIAN CYST [None]
